APPROVED DRUG PRODUCT: OXALIPLATIN
Active Ingredient: OXALIPLATIN
Strength: 100MG/20ML (5MG/ML)
Dosage Form/Route: INJECTABLE;INTRAVENOUS
Application: A205529 | Product #002
Applicant: EUGIA PHARMA SPECIALITIES LTD
Approved: Sep 6, 2017 | RLD: No | RS: No | Type: DISCN